FAERS Safety Report 21245214 (Version 2)
Quarter: 2022Q3

REPORT INFORMATION
  Report Type: Report from Study
  Country: KR (occurrence: KR)
  Receive Date: 20220823
  Receipt Date: 20220914
  Transmission Date: 20221027
  Serious: Yes (Hospitalization)
  Sender: FDA-Public Use
  Company Number: KR-SEATTLE GENETICS-2022SGN07788

PATIENT
  Age: 63 Year
  Sex: Female
  Weight: 33.6 kg

DRUGS (1)
  1. TISOTUMAB VEDOTIN [Suspect]
     Active Substance: TISOTUMAB VEDOTIN
     Indication: Cervix cancer metastatic
     Dosage: 2.0 MG/KG DAY 1 OF EVERY 21 DAYS
     Route: 042
     Dates: start: 20220715

REACTIONS (1)
  - Spinal cord compression [Not Recovered/Not Resolved]

NARRATIVE: CASE EVENT DATE: 20220812
